FAERS Safety Report 4654697-1 (Version None)
Quarter: 2005Q2

REPORT INFORMATION
  Report Type: 
  Country: None (occurrence: None)
  Receive Date: 20050505
  Receipt Date: 20050505
  Transmission Date: 20051028
  Serious: Yes (Life-Threatening, Hospitalization)
  Sender: FDA-Public Use
  Company Number: None

PATIENT
  Sex: Female
  Weight: 54.4316 kg

DRUGS (21)
  1. BEXTRA [Suspect]
     Indication: OSTEOARTHRITIS
     Dosage: 10 MG ONCE DAILY ORALLY
     Route: 048
     Dates: start: 19990101, end: 20041101
  2. MINOCYCLINE HCL [Concomitant]
  3. GUAIFENESIN/PSEUDOEPHEDRINE [Concomitant]
  4. GUAIFENESIN/DEXTROMETHORPHAN [Concomitant]
  5. FOSAMAX [Concomitant]
  6. FLEXERIL [Concomitant]
  7. MIRALAX [Concomitant]
  8. ENULOSE [Concomitant]
  9. CLIMARA [Concomitant]
  10. ADVAIR DISKUS 100/50 [Concomitant]
  11. FLONASE [Concomitant]
  12. VITAMIN B-12 [Concomitant]
  13. BENZOYL PEROXIDE [Concomitant]
  14. CLINAC BPO [Concomitant]
  15. DESQUAM E [Concomitant]
  16. ALOE VERA [Concomitant]
  17. CALCIUM + VITAMIN D [Concomitant]
  18. MELATONIN [Concomitant]
  19. ZINC PICOLINATE [Concomitant]
  20. VALERIAN [Concomitant]
  21. PAPAYA ENZYME [Concomitant]

REACTIONS (6)
  - CHEST DISCOMFORT [None]
  - DYSPNOEA [None]
  - INFLUENZA [None]
  - MYOCARDIAL INFARCTION [None]
  - NEPHROLITHIASIS [None]
  - SINUS CONGESTION [None]
